FAERS Safety Report 14999150 (Version 1)
Quarter: 2018Q2

REPORT INFORMATION
  Report Type: Spontaneous
  Country: DE (occurrence: DE)
  Receive Date: 20180612
  Receipt Date: 20180612
  Transmission Date: 20180711
  Serious: Yes (Hospitalization)
  Sender: FDA-Public Use
  Company Number: DE-TEVA-2018-DE-905602

PATIENT
  Age: 66 Year
  Sex: Male
  Weight: 82 kg

DRUGS (12)
  1. VINCRISTIN [Suspect]
     Active Substance: VINCRISTINE
     Dosage: ACCORDING TO THE SCHEME, SOLUTION FOR INJECTION / INFUSION
     Route: 042
  2. RITUXIMAB. [Suspect]
     Active Substance: RITUXIMAB
     Dosage: ACCORDING TO THE SCHEME, SOLUTION FOR INJECTION / INFUSION
     Route: 042
  3. ENOXAPARIN [Concomitant]
     Active Substance: ENOXAPARIN
     Dosage: 0-0-0-1, INJECTION / INFUSION SOLUTION
     Route: 058
  4. DOXORUBICIN [Suspect]
     Active Substance: DOXORUBICIN
     Dosage: ACCORDING TO THE SCHEME, SOLUTION FOR INJECTION / INFUSION
     Route: 042
  5. CALCIMAGON D3 500MG/400I.E. [Concomitant]
     Dosage: 500|400 MG/I.E., 1-0-0-0, KAUTABLETTEN
     Route: 048
  6. PREGABALIN. [Concomitant]
     Active Substance: PREGABALIN
     Dosage: 1-0-1-0, TABLETTEN
     Route: 048
  7. METAMIZOL [Concomitant]
     Active Substance: METAMIZOLE SODIUM
     Dosage: 1-1-1-0, TABLETTEN
     Route: 048
  8. CYCLOPHOSPHAMID [Suspect]
     Active Substance: CYCLOPHOSPHAMIDE
     Dosage: ACCORDING TO THE SCHEME, SOLUTION FOR INJECTION / INFUSION
  9. ENTECAVIR. [Concomitant]
     Active Substance: ENTECAVIR
     Dosage: 1-0-0-0, TABLETTEN
     Route: 048
  10. ALLOPURINOL. [Concomitant]
     Active Substance: ALLOPURINOL
     Dosage: 1-0-0-0, TABLETTEN
     Route: 048
  11. IBUPROFEN. [Concomitant]
     Active Substance: IBUPROFEN
     Dosage: 1-0-1-0, TABLETTEN
     Route: 048
  12. PANTOPRAZOL [Concomitant]
     Active Substance: PANTOPRAZOLE SODIUM
     Dosage: 40 MG, 1-0-0-0, TABLETTEN
     Route: 048

REACTIONS (3)
  - Soft tissue infection [Unknown]
  - Nausea [Unknown]
  - Pyrexia [Unknown]
